FAERS Safety Report 8520665-2 (Version None)
Quarter: 2012Q3

REPORT INFORMATION
  Report Type: 
  Country: None (occurrence: None)
  Receive Date: 20120719
  Receipt Date: 20120713
  Transmission Date: 20120928
  Serious: Yes (Other)
  Sender: FDA-Public Use
  Company Number: US-PFIZER INC-2012161971

PATIENT
  Sex: Female
  Weight: 74.83 kg

DRUGS (4)
  1. FUROSEMIDE [Concomitant]
     Indication: HYPERTENSION
     Dosage: UNK
  2. SAVELLA [Concomitant]
     Indication: FIBROMYALGIA
     Dosage: UNK
  3. LYRICA [Suspect]
     Indication: FIBROMYALGIA
     Dosage: 50 MG, 2X/DAY
     Route: 048
     Dates: start: 20100101
  4. LISINOPRIL [Concomitant]
     Indication: HYPERTENSION
     Dosage: UNK

REACTIONS (3)
  - OSTEOARTHRITIS [None]
  - ARTHROPATHY [None]
  - DRUG INEFFECTIVE [None]
